FAERS Safety Report 13628386 (Version 1)
Quarter: 2017Q2

REPORT INFORMATION
  Report Type: Spontaneous
  Country: NO (occurrence: NO)
  Receive Date: 20170608
  Receipt Date: 20170608
  Transmission Date: 20170830
  Serious: Yes (Hospitalization, Other)
  Sender: FDA-Public Use
  Company Number: NO-PFIZER INC-2017247616

PATIENT
  Age: 63 Year
  Sex: Female

DRUGS (1)
  1. CRIZOTINIB [Suspect]
     Active Substance: CRIZOTINIB
     Indication: NON-SMALL CELL LUNG CANCER METASTATIC
     Dosage: 250 MG, 2X/DAY
     Dates: start: 201407, end: 201604

REACTIONS (9)
  - Oesophagitis [Recovered/Resolved]
  - Blood alkaline phosphatase increased [Unknown]
  - Neuralgia [Unknown]
  - Blood lactate dehydrogenase [Unknown]
  - Pulmonary embolism [Unknown]
  - Embolism [Unknown]
  - Neoplasm progression [Unknown]
  - Photopsia [Recovered/Resolved]
  - Nausea [Recovered/Resolved]

NARRATIVE: CASE EVENT DATE: 201604
